FAERS Safety Report 5419587-5 (Version None)
Quarter: 2007Q3

REPORT INFORMATION
  Report Type: 
  Country: None (occurrence: None)
  Receive Date: 20070816
  Receipt Date: 20070816
  Transmission Date: 20080115
  Serious: Yes (Hospitalization)
  Sender: FDA-Public Use
  Company Number: None

PATIENT
  Sex: Female
  Weight: 61.81 kg

DRUGS (3)
  1. CARBOPLATIN [Suspect]
     Dosage: 271 MG
  2. TAXOL [Suspect]
     Dosage: 507.6 MG
  3. ATENOLOL [Concomitant]

REACTIONS (3)
  - ASTHENIA [None]
  - FALL [None]
  - HEART RATE DECREASED [None]
